FAERS Safety Report 6269431-1 (Version None)
Quarter: 2009Q3

REPORT INFORMATION
  Report Type: 
  Country: None (occurrence: None)
  Receive Date: 20090715
  Receipt Date: 20090701
  Transmission Date: 20100115
  Serious: Yes (Hospitalization, Other)
  Sender: FDA-Public Use
  Company Number: PHHY2009CN27248

PATIENT
  Age: 26 Year
  Sex: Male

DRUGS (3)
  1. GLEEVEC [Suspect]
     Dosage: 0.4 G, QD
     Dates: start: 20070721
  2. GLEEVEC [Suspect]
     Dosage: 0.6 G, QD
  3. GLEEVEC [Suspect]
     Dosage: 0.4 G, QD
     Dates: start: 20071119

REACTIONS (17)
  - ABDOMINAL DISTENSION [None]
  - ABNORMAL FAECES [None]
  - AGITATION [None]
  - APPETITE DISORDER [None]
  - BLOOD CHLORIDE INCREASED [None]
  - BLOOD SODIUM INCREASED [None]
  - DIABETES INSIPIDUS [None]
  - DIZZINESS POSTURAL [None]
  - DRY MOUTH [None]
  - IRRITABILITY [None]
  - MUSCLE INJURY [None]
  - MUSCLE SPASMS [None]
  - MYALGIA [None]
  - PLATELET COUNT INCREASED [None]
  - SINUS TACHYCARDIA [None]
  - UNDERWEIGHT [None]
  - URINE OUTPUT INCREASED [None]
